FAERS Safety Report 4574208-9 (Version None)
Quarter: 2005Q1

REPORT INFORMATION
  Report Type: 
  Country: None (occurrence: None)
  Receive Date: 20050208
  Receipt Date: 20050131
  Transmission Date: 20050727
  Serious: Yes (Death)
  Sender: FDA-Public Use
  Company Number: US-JNJFOC-20050102216

PATIENT
  Age: 84 Year
  Sex: Male

DRUGS (12)
  1. DURAGESIC [Suspect]
     Route: 062
     Dates: start: 20030101, end: 20050108
  2. DURAGESIC [Suspect]
     Indication: CANCER PAIN
     Route: 062
     Dates: start: 20030101, end: 20050108
  3. PROZAC [Concomitant]
     Indication: DEPRESSION
     Route: 049
  4. VICODIN [Concomitant]
     Route: 049
  5. VICODIN [Concomitant]
     Indication: THERAPEUTIC RESPONSE DECREASED
     Route: 049
  6. TRAZADONE [Concomitant]
     Indication: SLEEP DISORDER THERAPY
  7. SINEMET [Concomitant]
     Route: 049
  8. SINEMET [Concomitant]
     Route: 049
  9. POTASSIUM SUPPLEMENT [Concomitant]
     Route: 049
  10. PROTONIX [Concomitant]
     Route: 049
  11. METOPROLOL [Concomitant]
     Indication: HYPERTENSION
     Route: 049
  12. MORPHINE [Concomitant]
     Indication: PAIN
     Dates: start: 20050102

REACTIONS (4)
  - FACIAL BONES FRACTURE [None]
  - FALL [None]
  - METASTASES TO SPLEEN [None]
  - PROSTATE CANCER METASTATIC [None]
